FAERS Safety Report 14109338 (Version 3)
Quarter: 2017Q4

REPORT INFORMATION
  Report Type: Spontaneous
  Country: AR (occurrence: AR)
  Receive Date: 20171019
  Receipt Date: 20171117
  Transmission Date: 20180321
  Serious: Yes (Hospitalization)
  Sender: FDA-Public Use
  Company Number: PHHY2017AR152050

PATIENT
  Age: 70 Year
  Sex: Female

DRUGS (1)
  1. SANDOSTATIN LAR DEPOT [Suspect]
     Active Substance: OCTREOTIDE ACETATE
     Indication: PITUITARY TUMOUR BENIGN
     Dosage: 20 MG, QMO (1 DOSE EVERY 28 DAYS)
     Route: 065
     Dates: start: 2005, end: 20170623

REACTIONS (15)
  - Pneumonia [Unknown]
  - Renal failure [Unknown]
  - Leukocytosis [Unknown]
  - Bronchitis [Recovering/Resolving]
  - Diverticulum intestinal [Unknown]
  - Left atrial dilatation [Unknown]
  - Mitral valve incompetence [Unknown]
  - Feeling abnormal [Recovering/Resolving]
  - Escherichia infection [Unknown]
  - Pneumonitis [Unknown]
  - Respiratory failure [Recovering/Resolving]
  - Urinary tract infection [Unknown]
  - Memory impairment [Unknown]
  - Mycoplasma test positive [Unknown]
  - Anxiety [Recovering/Resolving]
